FAERS Safety Report 18943295 (Version 1)
Quarter: 2021Q1

REPORT INFORMATION
  Report Type: Spontaneous
  Country: US (occurrence: US)
  Receive Date: 20210226
  Receipt Date: 20210226
  Transmission Date: 20210420
  Serious: No
  Sender: FDA-Public Use
  Company Number: US-TEVA-2021-US-1884777

PATIENT
  Sex: Female

DRUGS (2)
  1. EFAVIRENZ W/EMTRICITABINE W/TENOFOVIR TEVA [Suspect]
     Active Substance: EFAVIRENZ\EMTRICITABINE\TENOFOVIR DISOPROXIL FUMARATE
     Indication: MALIGNANT CONNECTIVE TISSUE NEOPLASM
     Dosage: DOSE: EFAVIRENZ: 600 MG, EMTRICITABINE: 200 MG, TENOFOVIR: 300 MG
     Route: 065
  2. EFAVIRENZ W/EMTRICITABINE W/TENOFOVIR TEVA [Suspect]
     Active Substance: EFAVIRENZ\EMTRICITABINE\TENOFOVIR DISOPROXIL FUMARATE
     Indication: SOFT TISSUE SARCOMA

REACTIONS (1)
  - Headache [Unknown]
